FAERS Safety Report 16122447 (Version 6)
Quarter: 2019Q2

REPORT INFORMATION
  Report Type: Spontaneous
  Country: US (occurrence: US)
  Receive Date: 20190327
  Receipt Date: 20190618
  Transmission Date: 20190711
  Serious: Yes (Other)
  Sender: FDA-Public Use
  Company Number: PHEH2019US012937

PATIENT
  Age: 59 Year
  Sex: Female

DRUGS (5)
  1. AFINITOR [Suspect]
     Active Substance: EVEROLIMUS
     Indication: RENAL CANCER
     Dosage: 18 MG, QD
     Route: 048
     Dates: end: 20190225
  2. LENVATINIB [Suspect]
     Active Substance: LENVATINIB
     Indication: RENAL CANCER
     Dosage: 18 MG, QD
     Route: 048
  3. AFINITOR [Suspect]
     Active Substance: EVEROLIMUS
     Dosage: 5 MG, QD
     Route: 048
  4. LENVATINIB [Suspect]
     Active Substance: LENVATINIB
     Dosage: 14 MG, QD
     Route: 048
  5. AFINITOR [Suspect]
     Active Substance: EVEROLIMUS
     Dosage: UNK, QD
     Route: 048

REACTIONS (22)
  - Diarrhoea [Unknown]
  - Weight decreased [Unknown]
  - Back pain [Unknown]
  - Blood alkaline phosphatase increased [Unknown]
  - Osteonecrosis of jaw [Unknown]
  - Blood pressure increased [Recovered/Resolved]
  - Vomiting [Unknown]
  - Aspartate aminotransferase increased [Unknown]
  - Palmar-plantar erythrodysaesthesia syndrome [Recovered/Resolved]
  - Oral pain [Unknown]
  - Glomerular filtration rate decreased [Unknown]
  - Pain [Unknown]
  - Red cell distribution width increased [Unknown]
  - Carbon dioxide decreased [Unknown]
  - Stomatitis [Recovered/Resolved]
  - Skin lesion [Unknown]
  - Arthralgia [Unknown]
  - Appetite disorder [Unknown]
  - Mean cell haemoglobin decreased [Unknown]
  - Blood calcium increased [Unknown]
  - Cough [Unknown]
  - Fatigue [Unknown]

NARRATIVE: CASE EVENT DATE: 20190222
